FAERS Safety Report 4897896-6 (Version None)
Quarter: 2006Q1

REPORT INFORMATION
  Report Type: 
  Country: None (occurrence: None)
  Receive Date: 20060201
  Receipt Date: 20050527
  Transmission Date: 20060701
  Serious: Yes (Hospitalization, Disabling)
  Sender: FDA-Public Use
  Company Number: US-MERCK-0505USA03431

PATIENT
  Age: 41 Year
  Sex: Male
  Weight: 86 kg

DRUGS (26)
  1. OXYCONTIN [Concomitant]
     Indication: OSTEOARTHRITIS
     Route: 048
     Dates: start: 20000901
  2. OXYCONTIN [Concomitant]
     Indication: BACK PAIN
     Route: 048
     Dates: start: 20000901
  3. LEVAQUIN [Concomitant]
     Indication: OSTEOARTHRITIS
     Route: 065
     Dates: start: 20000405
  4. LEVAQUIN [Concomitant]
     Indication: BACK PAIN
     Route: 065
     Dates: start: 20000405
  5. ULTRAM [Concomitant]
     Indication: OSTEOARTHRITIS
     Route: 065
     Dates: start: 20000501
  6. ULTRAM [Concomitant]
     Indication: BACK PAIN
     Route: 065
     Dates: start: 20000501
  7. ACETAMINOPHEN AND CODEINE PHOSPHATE [Concomitant]
     Indication: OSTEOARTHRITIS
     Route: 065
     Dates: start: 20000701
  8. ACETAMINOPHEN AND CODEINE PHOSPHATE [Concomitant]
     Indication: BACK PAIN
     Route: 065
     Dates: start: 20000701
  9. STROVITE [Concomitant]
     Indication: VITAMIN SUPPLEMENTATION
     Route: 065
  10. VICODIN [Concomitant]
     Indication: OSTEOARTHRITIS
     Route: 048
     Dates: start: 20000601, end: 20040301
  11. VICODIN [Concomitant]
     Route: 048
     Dates: start: 20040101
  12. VICODIN [Concomitant]
     Indication: BACK PAIN
     Route: 048
     Dates: start: 20000601, end: 20040301
  13. VICODIN [Concomitant]
     Route: 048
     Dates: start: 20040101
  14. MOTRIN [Concomitant]
     Indication: OSTEOARTHRITIS
     Route: 065
     Dates: start: 20000201
  15. MOTRIN [Concomitant]
     Indication: BACK PAIN
     Route: 065
     Dates: start: 20000201
  16. DARVOCET-N 50 [Concomitant]
     Indication: OSTEOARTHRITIS
     Route: 065
     Dates: start: 20000501
  17. DARVOCET-N 50 [Concomitant]
     Indication: BACK PAIN
     Route: 065
     Dates: start: 20000501
  18. AMITRIPTYLINE HYDROCHLORIDE [Concomitant]
     Route: 065
  19. ZITHROMAX [Concomitant]
     Route: 065
  20. CILOXAN [Concomitant]
     Route: 001
  21. VIOXX [Suspect]
     Indication: OSTEOARTHRITIS
     Route: 048
     Dates: start: 20000409, end: 20000601
  22. VIOXX [Suspect]
     Route: 048
     Dates: start: 20000601, end: 20000619
  23. VIOXX [Suspect]
     Route: 048
     Dates: start: 20000620, end: 20040930
  24. VIOXX [Suspect]
     Indication: PROSTATITIS
     Route: 048
     Dates: start: 20000409, end: 20000601
  25. VIOXX [Suspect]
     Route: 048
     Dates: start: 20000601, end: 20000619
  26. VIOXX [Suspect]
     Route: 048
     Dates: start: 20000620, end: 20040930

REACTIONS (10)
  - ACUTE MYOCARDIAL INFARCTION [None]
  - BLOOD CHOLESTEROL INCREASED [None]
  - CERVICOBRACHIAL SYNDROME [None]
  - COMPRESSION FRACTURE [None]
  - CORONARY ARTERY DISEASE [None]
  - DRUG INEFFECTIVE [None]
  - HAEMATOCHEZIA [None]
  - HEADACHE [None]
  - LUMBAR RADICULOPATHY [None]
  - SPINAL COMPRESSION FRACTURE [None]
